FAERS Safety Report 4631095-8 (Version None)
Quarter: 2005Q2

REPORT INFORMATION
  Report Type: 
  Country: None (occurrence: None)
  Receive Date: 20050406
  Receipt Date: 20050324
  Transmission Date: 20051028
  Serious: Yes (Other)
  Sender: FDA-Public Use
  Company Number: 2005049741

PATIENT
  Age: 20 Year
  Sex: Female

DRUGS (2)
  1. FLAGYL [Suspect]
     Indication: TRICHOMONIASIS
     Dosage: 1000 MG (500 MG, 2 IN 1 D), ORAL
     Route: 048
     Dates: start: 20050318, end: 20050319
  2. ETHINYLESTRADIOL/NORELGESTROMIN (ETHINYLESTRADIOL, NORELGESTROMIN) [Concomitant]

REACTIONS (3)
  - ANAPHYLACTIC REACTION [None]
  - LOSS OF CONSCIOUSNESS [None]
  - URTICARIA [None]
